FAERS Safety Report 25810735 (Version 1)
Quarter: 2025Q3

REPORT INFORMATION
  Report Type: Spontaneous
  Country: US (occurrence: US)
  Receive Date: 20250917
  Receipt Date: 20250917
  Transmission Date: 20251021
  Serious: Yes (Other)
  Sender: AMGEN
  Company Number: US-AMGEN-USASP2025181094

PATIENT
  Age: 62 Year
  Sex: Female

DRUGS (2)
  1. PROLIA [Suspect]
     Active Substance: DENOSUMAB
     Indication: Osteoporosis
     Route: 065
  2. VALGANCICLOVIR [Suspect]
     Active Substance: VALGANCICLOVIR
     Indication: Antiviral prophylaxis
     Route: 065

REACTIONS (5)
  - Chronic obstructive pulmonary disease [Unknown]
  - Ankle fracture [Unknown]
  - Blood phosphorus decreased [Recovered/Resolved]
  - Blood 1,25-dihydroxycholecalciferol decreased [Unknown]
  - Fibroblast growth factor 23 increased [Unknown]
